FAERS Safety Report 10681894 (Version 2)
Quarter: 2014Q4

REPORT INFORMATION
  Report Type: Spontaneous
  Country: US (occurrence: US)
  Receive Date: 20141230
  Receipt Date: 20141230
  Transmission Date: 20150529
  Serious: Yes (Hospitalization)
  Sender: FDA-Public Use
  Company Number: US-UNITED THERAPEUTICS-UNT-2014-011504

PATIENT
  Sex: Female
  Weight: 70.29 kg

DRUGS (3)
  1. TYVASO [Suspect]
     Active Substance: TREPROSTINIL
     Indication: PULMONARY HYPERTENSION
     Dosage: 72-90 MICROGRAMS, QID
     Dates: start: 20120223
  2. TYVASO [Suspect]
     Active Substance: TREPROSTINIL
     Dosage: 72-90 MICROGRAMS, QID
     Dates: start: 20120224
  3. ADCIRCA [Concomitant]
     Active Substance: TADALAFIL
     Indication: PRODUCT USED FOR UNKNOWN INDICATION

REACTIONS (6)
  - Dyspnoea [Unknown]
  - Chronic obstructive pulmonary disease [Unknown]
  - Cough [Unknown]
  - Somnolence [Unknown]
  - Oedema peripheral [Unknown]
  - Treatment noncompliance [Unknown]

NARRATIVE: CASE EVENT DATE: 2014
